FAERS Safety Report 8103385-8 (Version None)
Quarter: 2012Q1

REPORT INFORMATION
  Report Type: 
  Country: None (occurrence: None)
  Receive Date: 20120201
  Receipt Date: 20120126
  Transmission Date: 20120608
  Serious: Yes (Hospitalization, Disabling, Other)
  Sender: FDA-Public Use
  Company Number: BR-PFIZER INC-2012023025

PATIENT
  Age: 56 Year
  Sex: Female

DRUGS (7)
  1. SYNTHROID [Concomitant]
     Indication: THYROID DISORDER
     Dosage: 1 TABLET IN THE MORNING
     Dates: start: 19920101
  2. FERROUS GLYCINE SULFATE [Concomitant]
  3. OMEPRAZOLE [Concomitant]
  4. ASPIRIN [Concomitant]
  5. AMLODIPINE BESILATE [Concomitant]
     Indication: BLOOD PRESSURE
     Dosage: 5 MG, 1X/DAY IN THE MORNING
     Dates: start: 20050101
  6. ALPRAZOLAM [Suspect]
     Dosage: UNK
     Route: 048
     Dates: start: 20060101
  7. LOSARTAN [Concomitant]
     Indication: BLOOD PRESSURE
     Dosage: 1 TABLET 1X/DAY AT NIGHT
     Dates: start: 20050101

REACTIONS (6)
  - HAEMODIALYSIS [None]
  - OSTEOPOROSIS [None]
  - BEDRIDDEN [None]
  - RENAL TRANSPLANT [None]
  - PAIN [None]
  - BLOOD CHOLESTEROL INCREASED [None]
